FAERS Safety Report 6634182-8 (Version None)
Quarter: 2010Q1

REPORT INFORMATION
  Report Type: 
  Country: None (occurrence: None)
  Receive Date: 20100315
  Receipt Date: 20100308
  Transmission Date: 20100710
  Serious: Yes (Hospitalization)
  Sender: FDA-Public Use
  Company Number: JP-JNJFOC-20091202187

PATIENT
  Sex: Male

DRUGS (7)
  1. TOPINA [Suspect]
     Indication: POST-TRAUMATIC EPILEPSY
     Route: 048
  2. TOPINA [Suspect]
     Route: 048
  3. TOPINA [Suspect]
     Route: 048
  4. TOPINA [Suspect]
     Route: 048
  5. SODIUM VALPROATE [Concomitant]
     Indication: POST-TRAUMATIC EPILEPSY
     Route: 048
  6. ZONISAMIDE [Concomitant]
     Indication: POST-TRAUMATIC EPILEPSY
     Route: 048
  7. ZONISAMIDE [Concomitant]
     Route: 048

REACTIONS (2)
  - AGITATION [None]
  - HALLUCINATION, VISUAL [None]
